FAERS Safety Report 4745741-1 (Version None)
Quarter: 2005Q3

REPORT INFORMATION
  Report Type: 
  Country: None (occurrence: None)
  Receive Date: 20050816
  Receipt Date: 20050804
  Transmission Date: 20060218
  Serious: Yes (Hospitalization, Disabling)
  Sender: FDA-Public Use
  Company Number: FR-SOLVAY-00305002522

PATIENT
  Age: 2 Month
  Sex: Male

DRUGS (2)
  1. FLOXYFRAL [Suspect]
     Indication: DRUG EXPOSURE DURING PREGNANCY
     Dosage: DAILY DOSE: 100 MILLIGRAM(S)
     Route: 064
  2. FLOXYFRAL [Suspect]
     Dosage: DAILY DOSE:  UNKNOWN
     Route: 050

REACTIONS (6)
  - AGITATION [None]
  - CRYING [None]
  - DRUG WITHDRAWAL SYNDROME [None]
  - FACIAL DYSMORPHISM [None]
  - HYPERTONIA [None]
  - PAIN [None]
